FAERS Safety Report 4497320-1 (Version None)
Quarter: 2004Q4

REPORT INFORMATION
  Report Type: 
  Country: None (occurrence: None)
  Receive Date: 20041104
  Receipt Date: 20041026
  Transmission Date: 20050328
  Serious: Yes (Other)
  Sender: FDA-Public Use
  Company Number: 2004241517US

PATIENT
  Age: 59 Year
  Sex: Male
  Weight: 77.1 kg

DRUGS (3)
  1. CELEBREX [Suspect]
     Indication: EPICONDYLITIS
     Dosage: SEE IMAGE
     Route: 048
     Dates: end: 20041017
  2. CELEBREX [Suspect]
     Indication: EPICONDYLITIS
     Dosage: SEE IMAGE
     Route: 048
     Dates: start: 20041013
  3. NEXIUM [Concomitant]

REACTIONS (8)
  - ARTHRALGIA [None]
  - ASTHENIA [None]
  - FACIAL DYSMORPHISM [None]
  - JOINT STIFFNESS [None]
  - LIVER FUNCTION TEST ABNORMAL [None]
  - MOUTH INJURY [None]
  - MYALGIA [None]
  - TONGUE BITING [None]
